FAERS Safety Report 15108712 (Version 1)
Quarter: 2018Q3

REPORT INFORMATION
  Report Type: Report from Study
  Country: US (occurrence: US)
  Receive Date: 20180705
  Receipt Date: 20180705
  Transmission Date: 20181010
  Serious: No
  Sender: FDA-Public Use
  Company Number: US-AMGEN-USASL2018090651

PATIENT
  Age: 56 Year
  Sex: Female

DRUGS (1)
  1. ENBREL [Suspect]
     Active Substance: ETANERCEPT
     Indication: RHEUMATOID ARTHRITIS
     Dosage: 50 MG, QWK
     Route: 065

REACTIONS (6)
  - Skin irritation [Unknown]
  - Injection site erythema [Recovered/Resolved]
  - Drug effect incomplete [Unknown]
  - Injection site swelling [Recovered/Resolved]
  - Arthropod bite [Unknown]
  - Erythema [Unknown]

NARRATIVE: CASE EVENT DATE: 20180626
